FAERS Safety Report 11144621 (Version 3)
Quarter: 2015Q3

REPORT INFORMATION
  Report Type: Spontaneous
  Country: US (occurrence: US)
  Receive Date: 20150528
  Receipt Date: 20150820
  Transmission Date: 20151125
  Serious: Yes (Hospitalization, Other)
  Sender: FDA-Public Use
  Company Number: US-PFIZER INC-2015171547

PATIENT
  Age: 53 Year
  Sex: Female
  Weight: 92 kg

DRUGS (7)
  1. LIPITOR [Suspect]
     Active Substance: ATORVASTATIN CALCIUM
     Indication: BLOOD CHOLESTEROL INCREASED
     Dosage: UNK
     Dates: start: 2002, end: 2004
  2. LORATADINE. [Concomitant]
     Active Substance: LORATADINE
     Indication: HYPERSENSITIVITY
     Dosage: 10 MG, UNK
  3. ALBUTEROL. [Concomitant]
     Active Substance: ALBUTEROL
     Indication: ASTHMA
     Dosage: 90 MG, UNK
  4. LIPITOR [Suspect]
     Active Substance: ATORVASTATIN CALCIUM
     Dosage: 20 MG, 2X/DAY
     Dates: start: 20070525, end: 20080430
  5. LORATADINE. [Concomitant]
     Active Substance: LORATADINE
     Indication: SINUS DISORDER
  6. PREVACID [Concomitant]
     Active Substance: LANSOPRAZOLE
     Indication: GASTROOESOPHAGEAL REFLUX DISEASE
     Dosage: 30 MG, UNK
  7. LIPITOR [Suspect]
     Active Substance: ATORVASTATIN CALCIUM
     Dosage: 60 MG, 1X/DAY
     Dates: start: 2003, end: 2004

REACTIONS (10)
  - Panic attack [Not Recovered/Not Resolved]
  - Asthenia [Recovered/Resolved]
  - Bone pain [Recovering/Resolving]
  - Fatigue [Recovered/Resolved]
  - General physical health deterioration [Not Recovered/Not Resolved]
  - Muscular weakness [Not Recovered/Not Resolved]
  - Drug intolerance [Recovered/Resolved]
  - Dizziness [Recovered/Resolved]
  - Diabetes mellitus [Not Recovered/Not Resolved]
  - Malaise [Recovering/Resolving]

NARRATIVE: CASE EVENT DATE: 2007
